FAERS Safety Report 9873355 (Version 3)
Quarter: 2014Q2

REPORT INFORMATION
  Report Type: Spontaneous
  Country: JP (occurrence: JP)
  Receive Date: 20140206
  Receipt Date: 20140424
  Transmission Date: 20141212
  Serious: Yes (Hospitalization)
  Sender: FDA-Public Use
  Company Number: JP-009507513-1402JPN000215

PATIENT
  Age: 84 Year
  Sex: Female

DRUGS (9)
  1. REFLEX [Suspect]
     Indication: DEPRESSION
     Dosage: 15 MG DAILY
     Route: 048
     Dates: start: 20131231, end: 20140127
  2. REFLEX [Suspect]
     Indication: CEREBRAL INFARCTION
  3. LEVOTHYROXINE SODIUM [Concomitant]
     Indication: HYPOTHYROIDISM
     Dosage: 75 MCG DAILY
     Route: 048
     Dates: start: 20131231
  4. PRAVASTATIN SODIUM [Concomitant]
     Indication: HYPERLIPIDAEMIA
     Dosage: 10 MG DAILY
     Route: 048
     Dates: start: 20131231
  5. AMLODIPINE BESYLATE [Concomitant]
     Indication: HYPERTENSION
     Dosage: 5 MG DAILY
     Route: 048
     Dates: start: 20131231, end: 20140206
  6. MAGNESIUM OXIDE [Concomitant]
     Indication: CONSTIPATION
     Dosage: 750 MG DAILY
     Route: 048
     Dates: start: 20131231
  7. CIFENLINE SUCCINATE [Concomitant]
     Indication: ARRHYTHMIA
     Dosage: 200 MG DAILY
     Route: 048
     Dates: start: 20131231
  8. ZOLPIDEM TARTRATE [Concomitant]
     Indication: INSOMNIA
     Dosage: 5 MG DAILY
     Route: 048
     Dates: start: 20131231
  9. ISOSORBIDE DINITRATE [Concomitant]
     Indication: ANGINA PECTORIS
     Dosage: 40 MG DAILY
     Dates: start: 20131231

REACTIONS (1)
  - Inappropriate antidiuretic hormone secretion [Recovered/Resolved]
